FAERS Safety Report 23056131 (Version 3)
Quarter: 2024Q1

REPORT INFORMATION
  Report Type: Spontaneous
  Country: US (occurrence: US)
  Receive Date: 20231011
  Receipt Date: 20240326
  Transmission Date: 20240410
  Serious: Yes (Hospitalization)
  Sender: FDA-Public Use
  Company Number: US-GLAXOSMITHKLINE-US2023136810

PATIENT

DRUGS (7)
  1. TRELEGY ELLIPTA [Suspect]
     Active Substance: FLUTICASONE FUROATE\UMECLIDINIUM BROMIDE\VILANTEROL TRIFENATATE
     Indication: Idiopathic pulmonary fibrosis
     Dosage: UNK
     Route: 055
  2. OFEV [Suspect]
     Active Substance: NINTEDANIB
     Indication: Idiopathic pulmonary fibrosis
     Dosage: 150 MG, BID
     Route: 048
     Dates: start: 20230407
  3. OFEV [Suspect]
     Active Substance: NINTEDANIB
     Dosage: 150 MG, BID
     Route: 048
     Dates: start: 20230407
  4. OFEV [Suspect]
     Active Substance: NINTEDANIB
     Dosage: 150 MG, BID
     Route: 048
     Dates: start: 20230411
  5. OFEV [Suspect]
     Active Substance: NINTEDANIB
     Dosage: 150 MG, BID
     Route: 048
  6. OFEV [Suspect]
     Active Substance: NINTEDANIB
     Dosage: 150 MG, BID
     Route: 048
  7. OFEV [Suspect]
     Active Substance: NINTEDANIB
     Dosage: 150 MG, BID
     Route: 048

REACTIONS (13)
  - Chest pain [Unknown]
  - Chest discomfort [Unknown]
  - Throat tightness [Not Recovered/Not Resolved]
  - Headache [Not Recovered/Not Resolved]
  - Nasal congestion [Not Recovered/Not Resolved]
  - Diarrhoea [Not Recovered/Not Resolved]
  - Dry mouth [Unknown]
  - Dysphonia [Not Recovered/Not Resolved]
  - Abdominal pain upper [Unknown]
  - Oropharyngeal pain [Not Recovered/Not Resolved]
  - Gastrointestinal pain [Not Recovered/Not Resolved]
  - Nausea [Unknown]
  - Weight decreased [Unknown]

NARRATIVE: CASE EVENT DATE: 20230423
